FAERS Safety Report 5480730-3 (Version None)
Quarter: 2007Q4

REPORT INFORMATION
  Report Type: 
  Country: None (occurrence: None)
  Receive Date: 20071003
  Receipt Date: 20070918
  Transmission Date: 20080405
  Serious: Yes (Other)
  Sender: FDA-Public Use
  Company Number: 2007PV033451

PATIENT
  Age: 67 Year
  Sex: Male
  Weight: 83.4619 kg

DRUGS (7)
  1. SYMLIN [Suspect]
     Indication: TYPE 2 DIABETES MELLITUS
     Dosage: 30 MCG; TID; SC, 45 MCG; TID; SC, 30 MCG; TID; SC, 15 MCG; TID; SC
     Route: 058
     Dates: start: 20070601, end: 20070601
  2. SYMLIN [Suspect]
     Indication: TYPE 2 DIABETES MELLITUS
     Dosage: 30 MCG; TID; SC, 45 MCG; TID; SC, 30 MCG; TID; SC, 15 MCG; TID; SC
     Route: 058
     Dates: start: 20070101, end: 20070701
  3. SYMLIN [Suspect]
     Indication: TYPE 2 DIABETES MELLITUS
     Dosage: 30 MCG; TID; SC, 45 MCG; TID; SC, 30 MCG; TID; SC, 15 MCG; TID; SC
     Route: 058
     Dates: start: 20070901
  4. HUMALOG [Concomitant]
  5. LANTUS [Concomitant]
  6. ACTOS [Concomitant]
  7. QUINAPRIL AND HYDROCHLOROTHIAZIDE [Concomitant]

REACTIONS (7)
  - APATHY [None]
  - EYE IRRITATION [None]
  - EYE OPERATION COMPLICATION [None]
  - FEELING ABNORMAL [None]
  - NAUSEA [None]
  - POST PROCEDURAL COMPLICATION [None]
  - RETINAL HAEMORRHAGE [None]
